FAERS Safety Report 9410391 (Version 2)
Quarter: 2013Q3

REPORT INFORMATION
  Report Type: Spontaneous
  Country: CR (occurrence: CR)
  Receive Date: 20130719
  Receipt Date: 20130723
  Transmission Date: 20140515
  Serious: No
  Sender: FDA-Public Use
  Company Number: CR-GLAXOSMITHKLINE-A1033986A

PATIENT
  Age: 44 Year
  Sex: Female

DRUGS (2)
  1. LAMICTAL [Suspect]
     Indication: AFFECTIVE DISORDER
     Dosage: 200MG PER DAY
     Route: 048
  2. OPIOID [Concomitant]
     Indication: HEADACHE

REACTIONS (5)
  - Rash vesicular [Recovered/Resolved]
  - Swelling [Recovered/Resolved]
  - Swelling face [Recovered/Resolved]
  - Lip oedema [Recovered/Resolved]
  - Oedema mouth [Recovered/Resolved]
